FAERS Safety Report 17023397 (Version 1)
Quarter: 2019Q4

REPORT INFORMATION
  Report Type: Spontaneous
  Country: US (occurrence: US)
  Receive Date: 20191112
  Receipt Date: 20191112
  Transmission Date: 20200122
  Serious: No
  Sender: FDA-Public Use
  Company Number: US-JNJFOC-20191104574

PATIENT

DRUGS (2)
  1. MENS ROGAINE EXTRA STRENGTH [Suspect]
     Active Substance: MINOXIDIL
     Indication: ALOPECIA
     Dosage: NOTE: THE PATIENT STATED THAT FOLLOWED THE DIRECTIONS WITH GREAT CARE.
     Route: 061
  2. ROGAINE [Suspect]
     Active Substance: MINOXIDIL
     Indication: ALOPECIA
     Dosage: NOTE: THE PATIENT STATED THAT FOLLOWED THE DIRECTIONS WITH GREAT CARE.
     Route: 061

REACTIONS (2)
  - Application site pain [Unknown]
  - Dandruff [Unknown]
